FAERS Safety Report 5275982-9 (Version None)
Quarter: 2007Q1

REPORT INFORMATION
  Report Type: 
  Country: None (occurrence: None)
  Receive Date: 20061219
  Receipt Date: 20060906
  Transmission Date: 20070707
  Serious: Yes (Hospitalization, Other)
  Sender: FDA-Public Use
  Company Number: US-JNJFOC-20060901362

PATIENT
  Age: 12 Year
  Sex: Female
  Weight: 48.9885 kg

DRUGS (2)
  1. ORTHO EVRA [Suspect]
     Indication: DRUG USE FOR UNKNOWN INDICATION
     Dates: start: 20030401, end: 20040101
  2. PROZAC (FLUOXETINE HYDROCHLORIDE) LIQUID [Concomitant]

REACTIONS (1)
  - DEEP VEIN THROMBOSIS [None]
